FAERS Safety Report 9278125 (Version 1)
Quarter: 2013Q2

REPORT INFORMATION
  Report Type: Spontaneous
  Country: US (occurrence: None)
  Receive Date: 20130503
  Receipt Date: 20130503
  Transmission Date: 20140414
  Serious: Yes (Other)
  Sender: FDA-Public Use
  Company Number: None

PATIENT
  Age: 58 Year
  Sex: Female
  Weight: 75 kg

DRUGS (6)
  1. NTG AGELESS RESTORATIVES ANTI-OXIDANT MOIS [Suspect]
     Route: 061
     Dates: start: 20120115, end: 20120115
  2. NTG AGELESS RESTORATIVES ANTI-OXIDANT MOIS [Suspect]
     Route: 061
     Dates: end: 20120115
  3. AMBIEN (ZOLPIDEM) [Concomitant]
  4. ESTRADIOL [Concomitant]
  5. BUSPIRONE [Concomitant]
  6. HYDROCHLOROTHIAZIDE AND LISINOPRIL [Concomitant]

REACTIONS (6)
  - Blister [None]
  - Headache [None]
  - Dyspnoea [None]
  - Dermatitis contact [None]
  - Eyelid skin dryness [None]
  - Pruritus genital [None]
